FAERS Safety Report 23066279 (Version 3)
Quarter: 2023Q4

REPORT INFORMATION
  Report Type: Spontaneous
  Country: US (occurrence: US)
  Receive Date: 20231015
  Receipt Date: 20231205
  Transmission Date: 20240109
  Serious: No
  Sender: FDA-Public Use
  Company Number: US-SANOFI-01797404

PATIENT
  Sex: Male

DRUGS (1)
  1. DUPIXENT [Suspect]
     Active Substance: DUPILUMAB
     Indication: Eczema
     Dosage: UNK
     Dates: start: 20230729

REACTIONS (3)
  - Burning sensation [Unknown]
  - Accidental exposure to product [Unknown]
  - Product preparation error [Unknown]

NARRATIVE: CASE EVENT DATE: 20230101
